FAERS Safety Report 7298288-5 (Version None)
Quarter: 2011Q1

REPORT INFORMATION
  Report Type: 
  Country: None (occurrence: None)
  Receive Date: 20110217
  Receipt Date: 20100329
  Transmission Date: 20110831
  Serious: No
  Sender: FDA-Public Use
  Company Number: US-PFIZER INC-2010040185

PATIENT
  Sex: Female

DRUGS (2)
  1. ZOLPIDEM [Concomitant]
     Indication: INSOMNIA
     Dosage: UNK
  2. XALATAN [Suspect]
     Indication: GLAUCOMA
     Dosage: 125 UG, 1X/DAY

REACTIONS (2)
  - EYE IRRITATION [None]
  - EYE PAIN [None]
